FAERS Safety Report 15096843 (Version 3)
Quarter: 2018Q4

REPORT INFORMATION
  Report Type: Spontaneous
  Country: JP (occurrence: JP)
  Receive Date: 20180702
  Receipt Date: 20181120
  Transmission Date: 20190204
  Serious: Yes (Other)
  Sender: FDA-Public Use
  Company Number: JP-PFIZER INC-2018258334

PATIENT
  Age: 77 Year

DRUGS (2)
  1. TAMOXIFEN [Concomitant]
     Active Substance: TAMOXIFEN
  2. IBRANCE [Suspect]
     Active Substance: PALBOCICLIB
     Indication: BREAST CANCER
     Dosage: 125 UNK, UNK
     Route: 048

REACTIONS (2)
  - Bone marrow failure [Unknown]
  - Neoplasm progression [Unknown]
